FAERS Safety Report 8604767-8 (Version None)
Quarter: 2012Q3

REPORT INFORMATION
  Report Type: 
  Country: None (occurrence: None)
  Receive Date: 20120820
  Receipt Date: 20120816
  Transmission Date: 20120928
  Serious: No
  Sender: FDA-Public Use
  Company Number: US-PFIZER INC-2012201927

PATIENT
  Age: 69 Year
  Sex: Male
  Weight: 102 kg

DRUGS (6)
  1. CELEBREX [Suspect]
     Indication: BACK PAIN
     Dosage: 200 MG, AS NEEDED
     Route: 048
     Dates: start: 20110101
  2. HYTRIN [Concomitant]
     Indication: HYPERTENSION
     Dosage: 10 MG, DAILY
  3. LIPITOR [Concomitant]
     Indication: HYPERCHOLESTEROLAEMIA
     Dosage: 40 MG, DAILY
  4. VICOPROFEN [Suspect]
     Indication: MUSCULOSKELETAL STIFFNESS
     Dosage: 7.5/200 MG, UNK
     Dates: start: 20120816
  5. VICOPROFEN [Suspect]
     Indication: BACK PAIN
  6. CELEBREX [Suspect]
     Indication: MUSCULOSKELETAL PAIN

REACTIONS (2)
  - MEDICATION ERROR [None]
  - DRUG INEFFECTIVE [None]
